FAERS Safety Report 24719084 (Version 1)
Quarter: 2024Q4

REPORT INFORMATION
  Report Type: Spontaneous
  Country: CA (occurrence: CA)
  Receive Date: 20241210
  Receipt Date: 20241210
  Transmission Date: 20250114
  Serious: Yes (Hospitalization, Other)
  Sender: NOVARTIS
  Company Number: CA-SANDOZ-SDZ2024CA100467

PATIENT
  Age: 66 Year
  Sex: Male

DRUGS (3)
  1. EVEROLIMUS [Suspect]
     Active Substance: EVEROLIMUS
     Indication: Product used for unknown indication
     Dosage: UNK
     Route: 065
  2. EVEROLIMUS [Suspect]
     Active Substance: EVEROLIMUS
     Dosage: 7.5 MG
     Route: 065
  3. LENVIMA [Concomitant]
     Active Substance: LENVATINIB
     Indication: Product used for unknown indication
     Dosage: 14 MG
     Route: 065

REACTIONS (7)
  - Illness [Recovering/Resolving]
  - Renal impairment [Unknown]
  - Skin hypopigmentation [Unknown]
  - Gait disturbance [Unknown]
  - Pain [Unknown]
  - Musculoskeletal chest pain [Unknown]
  - Fatigue [Unknown]

NARRATIVE: CASE EVENT DATE: 20241203
